FAERS Safety Report 7716452-5 (Version None)
Quarter: 2011Q3

REPORT INFORMATION
  Report Type: 
  Country: None (occurrence: None)
  Receive Date: 20110829
  Receipt Date: 20110824
  Transmission Date: 20111222
  Serious: Yes (Life-Threatening, Hospitalization, Other)
  Sender: FDA-Public Use
  Company Number: PHHO2011US14406

PATIENT
  Age: 55 Year
  Sex: Male

DRUGS (9)
  1. AFINITOR [Suspect]
     Indication: COLORECTAL CANCER METASTATIC
     Dosage: 5 MG, QD
     Route: 048
     Dates: start: 20110302, end: 20110816
  2. DECADRON [Concomitant]
  3. LOVENOX [Concomitant]
  4. INDOCIN [Concomitant]
  5. LISINOPRIL [Concomitant]
  6. ROXICET [Concomitant]
     Route: 048
  7. ASPIRIN [Concomitant]
  8. CLINDAMYCIN [Concomitant]
  9. MAALOX [Concomitant]

REACTIONS (3)
  - NEOPLASM MALIGNANT [None]
  - SPINAL OSTEOARTHRITIS [None]
  - NEOPLASM PROGRESSION [None]
